FAERS Safety Report 5716215-6 (Version None)
Quarter: 2008Q2

REPORT INFORMATION
  Report Type: 
  Country: None (occurrence: None)
  Receive Date: 20080417
  Receipt Date: 20070921
  Transmission Date: 20081010
  Serious: Yes (Other)
  Sender: FDA-Public Use
  Company Number: CHPA2007US09921

PATIENT
  Sex: Female

DRUGS (1)
  1. VAGISTAT-1 [Suspect]
     Indication: VULVOVAGINAL MYCOTIC INFECTION
     Dosage: 300 MG, ONCE/SINGLE, VAGINAL
     Route: 067
     Dates: start: 20070920, end: 20070920

REACTIONS (2)
  - LABIA ENLARGED [None]
  - PERINEAL PAIN [None]
